FAERS Safety Report 7486611-8 (Version None)
Quarter: 2011Q2

REPORT INFORMATION
  Report Type: 
  Country: None (occurrence: None)
  Receive Date: 20110517
  Receipt Date: 20101025
  Transmission Date: 20111010
  Serious: No
  Sender: FDA-Public Use
  Company Number: US-NOVEN-ALL1-2010-04982

PATIENT
  Sex: Male
  Weight: 25.397 kg

DRUGS (2)
  1. DAYTRANA [Suspect]
     Dosage: 20 MG, 1X/DAY:QD
     Route: 062
     Dates: start: 20100401
  2. SUDAFED S.A. [Suspect]
     Dosage: UNK, 1 TEASPOON AS REQ'D
     Route: 048
     Dates: start: 20100921

REACTIONS (2)
  - NASOPHARYNGITIS [None]
  - DRUG INEFFECTIVE [None]
